FAERS Safety Report 5026959-X (Version None)
Quarter: 2006Q2

REPORT INFORMATION
  Report Type: 
  Country: None (occurrence: None)
  Receive Date: 20060609
  Receipt Date: 20060530
  Transmission Date: 20061013
  Serious: Yes (Hospitalization)
  Sender: FDA-Public Use
  Company Number: USA-2006-0024254

PATIENT
  Age: 81 Year
  Sex: Male

DRUGS (6)
  1. CEFDITOREN PIVOXIL (SIMILAR TO NDA 21-222)(CEFDITOREN PIVOXIL) UNKNOWN [Suspect]
     Indication: BRONCHITIS
     Dosage: 300 MG, DAILY, ORAL
     Route: 048
     Dates: start: 20060407, end: 20060410
  2. KIPRES(MONTELUKAST SODIUM) [Suspect]
     Indication: BRONCHITIS
     Dosage: 10 MG, DAILY
     Dates: start: 20060330, end: 20060410
  3. PREDNISOLONE [Concomitant]
  4. HOKUNALIN (TULOBUTEROL HYDROCHLORIDE) [Concomitant]
  5. SEREVENT [Concomitant]
  6. QVAR 40 [Concomitant]

REACTIONS (6)
  - ALANINE AMINOTRANSFERASE INCREASED [None]
  - ASPARTATE AMINOTRANSFERASE INCREASED [None]
  - BLOOD ALKALINE PHOSPHATASE INCREASED [None]
  - BLOOD LACTATE DEHYDROGENASE INCREASED [None]
  - GAMMA-GLUTAMYLTRANSFERASE INCREASED [None]
  - LIVER DISORDER [None]
